FAERS Safety Report 4740088-1 (Version None)
Quarter: 2005Q3

REPORT INFORMATION
  Report Type: 
  Country: None (occurrence: None)
  Receive Date: 20050810
  Receipt Date: 20040621
  Transmission Date: 20060218
  Serious: No
  Sender: FDA-Public Use
  Company Number: US-GLAXOSMITHKLINE-A0517568A

PATIENT
  Age: 34 Year
  Sex: Female

DRUGS (2)
  1. PAXIL [Suspect]
     Indication: DEPRESSION
     Dosage: 20MG PER DAY
     Route: 048
     Dates: start: 20020117, end: 20020801
  2. WELLBUTRIN [Concomitant]
     Dosage: 75MG TWICE PER DAY
     Route: 048
     Dates: start: 20020801

REACTIONS (1)
  - DRUG WITHDRAWAL SYNDROME [None]
